FAERS Safety Report 15274504 (Version 2)
Quarter: 2018Q3

REPORT INFORMATION
  Report Type: Spontaneous
  Country: JP (occurrence: JP)
  Receive Date: 20180814
  Receipt Date: 20180919
  Transmission Date: 20181010
  Serious: Yes (Other)
  Sender: FDA-Public Use
  Company Number: JP-ASTELLAS-2018JP013779

PATIENT
  Age: 43 Year
  Sex: Male
  Weight: 48 kg

DRUGS (13)
  1. GRACEPTOR [Suspect]
     Active Substance: TACROLIMUS
     Indication: PROPHYLAXIS AGAINST TRANSPLANT REJECTION
     Dosage: 15 MG, ONCE DAILY, IN THE MORNING
     Route: 048
     Dates: start: 20140915, end: 20140919
  2. SOLU?MEDROL [Suspect]
     Active Substance: METHYLPREDNISOLONE SODIUM SUCCINATE
     Route: 042
     Dates: start: 20140924, end: 20140925
  3. FENTANYL                           /00174602/ [Interacting]
     Active Substance: FENTANYL
     Indication: PROCEDURAL PAIN
     Route: 041
     Dates: start: 20140917, end: 20140918
  4. SOLU?MEDROL [Suspect]
     Active Substance: METHYLPREDNISOLONE SODIUM SUCCINATE
     Indication: RENAL TRANSPLANT
     Route: 042
     Dates: start: 20140917, end: 20140917
  5. BIOFERMIN                          /01617201/ [Concomitant]
     Active Substance: BACILLUS SUBTILIS\LACTOBACILLUS ACIDOPHILUS\STREPTOCOCCUS FAECAIS
     Indication: DIARRHOEA
     Dosage: 1 PACKET, TWICE DAILY, IN THE MORNING AND IN THE EVENING
     Route: 048
     Dates: start: 20140918
  6. GRACEPTOR [Interacting]
     Active Substance: TACROLIMUS
     Dosage: 12 MG, ONCE DAILY, IN THE MORNING
     Route: 048
     Dates: start: 20140920, end: 20140922
  7. CELLCEPT [Suspect]
     Active Substance: MYCOPHENOLATE MOFETIL\MYCOPHENOLATE MOFETIL HYDROCHLORIDE
     Indication: IMMUNOSUPPRESSION
     Dosage: 1000 MG, TWICE DAILY, IN THE MORNING AND IN THE EVENING
     Route: 048
     Dates: start: 20140905
  8. SOLU?MEDROL [Suspect]
     Active Substance: METHYLPREDNISOLONE SODIUM SUCCINATE
     Route: 042
     Dates: start: 20140922, end: 20140923
  9. GRACEPTOR [Interacting]
     Active Substance: TACROLIMUS
     Route: 048
     Dates: start: 20140923
  10. SOLU?MEDROL [Suspect]
     Active Substance: METHYLPREDNISOLONE SODIUM SUCCINATE
     Route: 042
     Dates: start: 20140920, end: 20140921
  11. MARZULENE S [Suspect]
     Active Substance: GLUTAMINE\SODIUM GUALENATE
     Indication: CHRONIC GASTRITIS
     Dosage: 1 PACKET, TWICE DAILY, IN THE MORNING AND IN THE EVENING
     Route: 048
     Dates: start: 20140918
  12. SOLU?MEDROL [Suspect]
     Active Substance: METHYLPREDNISOLONE SODIUM SUCCINATE
     Route: 042
     Dates: start: 20140918, end: 20140919
  13. CELLCEPT [Suspect]
     Active Substance: MYCOPHENOLATE MOFETIL\MYCOPHENOLATE MOFETIL HYDROCHLORIDE
     Indication: RENAL TRANSPLANT

REACTIONS (4)
  - Diabetes mellitus [Unknown]
  - Drug level increased [Recovering/Resolving]
  - Diarrhoea [Unknown]
  - Drug interaction [Unknown]

NARRATIVE: CASE EVENT DATE: 201409
